FAERS Safety Report 9342736 (Version 2)
Quarter: 2013Q3

REPORT INFORMATION
  Report Type: Spontaneous
  Country: US (occurrence: US)
  Receive Date: 20130611
  Receipt Date: 20130704
  Transmission Date: 20140515
  Serious: No
  Sender: FDA-Public Use
  Company Number: US-PFIZER INC-2013174157

PATIENT
  Age: 81 Year
  Sex: Female
  Weight: 57.14 kg

DRUGS (13)
  1. TOVIAZ [Suspect]
     Indication: HYPERTONIC BLADDER
     Dosage: 8 MG, 1X/DAY
     Route: 048
     Dates: start: 201305
  2. VENLAFAXINE [Concomitant]
     Indication: DEPRESSION
     Dosage: 75 MG, UNK
  3. OCUVITE [Concomitant]
     Dosage: UNK
  4. METOPROLOL [Concomitant]
     Dosage: UNK
  5. PRAVASTATIN [Concomitant]
     Dosage: UNK
  6. TRAZODONE [Concomitant]
     Indication: SLEEP DISORDER
     Dosage: UNK
  7. LORTAB [Concomitant]
     Indication: PAIN
     Dosage: UNK
  8. FONDAPARINUX [Concomitant]
     Dosage: UNK
  9. ISOSORBIDE [Concomitant]
     Dosage: UNK
  10. PEPCID [Concomitant]
     Dosage: UNK
  11. ASPIRIN [Concomitant]
     Dosage: 81 MG, UNK
  12. MAGNESIUM OXIDE [Concomitant]
     Dosage: UNK
  13. VITAMIN D3 SUPPLEMENT [Concomitant]
     Dosage: 2000 IU, UNK

REACTIONS (2)
  - Enuresis [Unknown]
  - Drug ineffective [Unknown]
